FAERS Safety Report 6905956-0 (Version None)
Quarter: 2010Q3

REPORT INFORMATION
  Report Type: 
  Country: None (occurrence: None)
  Receive Date: 20100804
  Receipt Date: 20100723
  Transmission Date: 20110219
  Serious: Yes (Hospitalization, Other)
  Sender: FDA-Public Use
  Company Number: US-ELI_LILLY_AND_COMPANY-US201007007135

PATIENT
  Sex: Female

DRUGS (2)
  1. FORTEO [Suspect]
  2. OMEPRAZOLE [Concomitant]

REACTIONS (2)
  - INSOMNIA [None]
  - SURGERY [None]
